FAERS Safety Report 9175425 (Version 2)
Quarter: 2013Q2

REPORT INFORMATION
  Report Type: Report from Study
  Country: US (occurrence: US)
  Receive Date: 20130320
  Receipt Date: 20130412
  Transmission Date: 20140414
  Serious: Yes (Death)
  Sender: FDA-Public Use
  Company Number: US-ROCHE-1203916

PATIENT
  Sex: Male
  Weight: 97 kg

DRUGS (5)
  1. AVASTIN [Suspect]
     Indication: COLON CANCER
     Route: 042
     Dates: start: 20120329, end: 20120510
  2. 5-FU [Concomitant]
     Indication: COLON CANCER
     Route: 042
     Dates: start: 20120327, end: 20120508
  3. OXALIPLATIN [Concomitant]
  4. LEUCOVORIN CALCIUM [Concomitant]
  5. CAMPTOSAR [Concomitant]
     Indication: COLON CANCER
     Route: 042
     Dates: start: 20120327, end: 20120508

REACTIONS (1)
  - Colon cancer metastatic [Fatal]
